FAERS Safety Report 16134911 (Version 1)
Quarter: 2019Q1

REPORT INFORMATION
  Report Type: Report from Study
  Country: None (occurrence: US)
  Receive Date: 20190329
  Receipt Date: 20190329
  Transmission Date: 20190418
  Serious: Yes (Hospitalization, Other)
  Sender: FDA-Public Use
  Company Number: US-ABBVIE-19K-163-2691279-00

PATIENT
  Sex: Male

DRUGS (3)
  1. HUMIRA [Suspect]
     Active Substance: ADALIMUMAB
     Dosage: 2 PENS DAY15
     Route: 058
     Dates: start: 20181231, end: 20181231
  2. HUMIRA [Suspect]
     Active Substance: ADALIMUMAB
     Route: 058
     Dates: start: 20190114, end: 20190225
  3. HUMIRA [Suspect]
     Active Substance: ADALIMUMAB
     Indication: CROHN^S DISEASE
     Dosage: 4 PENS DAY 1
     Route: 058
     Dates: start: 20181217, end: 20181217

REACTIONS (2)
  - Intestinal resection [Unknown]
  - Gastric infection [Unknown]

NARRATIVE: CASE EVENT DATE: 2019
